FAERS Safety Report 14211772 (Version 2)
Quarter: 2017Q4

REPORT INFORMATION
  Report Type: Spontaneous
  Country: FR (occurrence: FR)
  Receive Date: 20171122
  Receipt Date: 20171204
  Transmission Date: 20180321
  Serious: Yes (Life-Threatening)
  Sender: FDA-Public Use
  Company Number: FR-LPDUSPRD-20171588

PATIENT
  Age: 86 Year
  Sex: Female

DRUGS (1)
  1. FERINJECT [Suspect]
     Active Substance: FERRIC CARBOXYMALTOSE
     Dosage: 500MG,ONCE
     Route: 041
     Dates: start: 20170930

REACTIONS (1)
  - Cardiopulmonary failure [Unknown]

NARRATIVE: CASE EVENT DATE: 20170930
